FAERS Safety Report 9322498 (Version 1)
Quarter: 2013Q2

REPORT INFORMATION
  Report Type: Spontaneous
  Country: NL (occurrence: NL)
  Receive Date: 20130531
  Receipt Date: 20130531
  Transmission Date: 20140414
  Serious: Yes (Hospitalization)
  Sender: FDA-Public Use
  Company Number: PHHY2013NL053985

PATIENT
  Age: 36 Year
  Sex: Female

DRUGS (3)
  1. OXAZEPAM [Suspect]
     Indication: SLEEP DISORDER
     Dosage: 10 MG, QD3SDO
     Route: 048
     Dates: start: 20130124
  2. PREDNISON [Interacting]
     Dosage: 5 MG, UNK
     Route: 048
     Dates: start: 20121030, end: 20130129
  3. PREDNISON [Interacting]
     Dosage: 60 MG IN THE MORNING
     Route: 048

REACTIONS (2)
  - Anxiety disorder [Recovered/Resolved]
  - Drug interaction [Recovered/Resolved]
